FAERS Safety Report 7761026-3 (Version None)
Quarter: 2011Q3

REPORT INFORMATION
  Report Type: 
  Country: None (occurrence: None)
  Receive Date: 20110920
  Receipt Date: 20110906
  Transmission Date: 20111222
  Serious: Yes (Other)
  Sender: FDA-Public Use
  Company Number: GB-RANBAXY-2010RR-30863

PATIENT
  Age: 45 Year
  Sex: Female

DRUGS (7)
  1. CITANEST FORTE DENTAL [Suspect]
     Indication: PRODUCT USED FOR UNKNOWN INDICATION
     Dosage: 10.5 ML, UNK
     Route: 065
  2. MIDAZOLAM HCL [Concomitant]
     Indication: SEDATION
     Route: 042
  3. FENTANYL [Suspect]
     Indication: SEDATION
     Dosage: 50 UG, UNK
     Route: 065
  4. CITANEST FORTE DENTAL [Suspect]
     Dosage: 2.5 ML, UNK
  5. WARFARIN SODIUM [Concomitant]
     Indication: PRODUCT USED FOR UNKNOWN INDICATION
     Route: 065
  6. CLINDAMYCIN HCL [Concomitant]
     Indication: ENDOCARDITIS PROPHYLAXIS
     Route: 042
  7. ACETAMINPHEN AND CODEINE PHOSPHATE [Suspect]
     Indication: PRODUCT USED FOR UNKNOWN INDICATION
     Route: 065

REACTIONS (1)
  - METHAEMOGLOBINAEMIA [None]
